FAERS Safety Report 13790944 (Version 1)
Quarter: 2017Q3

REPORT INFORMATION
  Report Type: Spontaneous
  Country: US (occurrence: US)
  Receive Date: 20170725
  Receipt Date: 20170725
  Transmission Date: 20171127
  Serious: Yes (Hospitalization)
  Sender: FDA-Public Use
  Company Number: US-JNJFOC-20170712012

PATIENT
  Age: 6 Decade
  Sex: Female
  Weight: 73.47 kg

DRUGS (5)
  1. MOTRIN [Suspect]
     Active Substance: IBUPROFEN
     Indication: BACK PAIN
     Dosage: 800 MG ONCE EVERY 6 HOURS AS NECESSARY
     Route: 048
     Dates: start: 201510
  2. PEMBROLIZUMAB. [Suspect]
     Active Substance: PEMBROLIZUMAB
     Indication: NON-SMALL CELL LUNG CANCER
     Route: 042
     Dates: start: 20170228, end: 20170228
  3. MOTRIN [Suspect]
     Active Substance: IBUPROFEN
     Indication: PULMONARY PAIN
     Dosage: 800 MG ONCE EVERY 6 HOURS AS NECESSARY
     Route: 048
     Dates: start: 201510
  4. POTASSIUM [Concomitant]
     Active Substance: POTASSIUM
     Indication: PRODUCT USED FOR UNKNOWN INDICATION
     Route: 065
     Dates: start: 20170314
  5. DIFLUCAN [Concomitant]
     Active Substance: FLUCONAZOLE
     Indication: ORAL CANDIDIASIS
     Route: 065
     Dates: start: 20170314

REACTIONS (3)
  - Product use in unapproved indication [Unknown]
  - Lacunar infarction [Recovered/Resolved]
  - Overdose [Unknown]

NARRATIVE: CASE EVENT DATE: 201510
